FAERS Safety Report 22332867 (Version 14)
Quarter: 2025Q1

REPORT INFORMATION
  Report Type: Report from Study
  Country: RU (occurrence: RU)
  Receive Date: 20230517
  Receipt Date: 20250220
  Transmission Date: 20250409
  Serious: Yes (Death, Hospitalization, Other)
  Sender: TAKEDA
  Company Number: RU-TAKEDA-2022TUS076890

PATIENT
  Age: 5 Year
  Sex: Male

DRUGS (8)
  1. IDURSULFASE [Suspect]
     Active Substance: IDURSULFASE
     Indication: Mucopolysaccharidosis II
  2. IDURSULFASE [Suspect]
     Active Substance: IDURSULFASE
  3. CARBAMAZEPINE [Suspect]
     Active Substance: CARBAMAZEPINE
     Indication: Epilepsy
  4. KEPPRA [Suspect]
     Active Substance: LEVETIRACETAM
     Indication: Epilepsy
  5. VALPROIC ACID [Suspect]
     Active Substance: VALPROIC ACID
     Indication: Epilepsy
  6. TRILEPTAL [Suspect]
     Active Substance: OXCARBAZEPINE
     Indication: Epilepsy
  7. LEVETIRACETAM [Suspect]
     Active Substance: LEVETIRACETAM
     Indication: Epilepsy
  8. CALCIUM HOPANTENATE [Suspect]
     Active Substance: CALCIUM HOPANTENATE
     Indication: Product used for unknown indication

REACTIONS (27)
  - Brain oedema [Fatal]
  - Choking [Unknown]
  - Hepatitis C [Not Recovered/Not Resolved]
  - Loss of consciousness [Not Recovered/Not Resolved]
  - Epilepsy [Not Recovered/Not Resolved]
  - Oral neoplasm [Not Recovered/Not Resolved]
  - Decreased appetite [Recovering/Resolving]
  - Fluid intake reduced [Recovering/Resolving]
  - Weight decreased [Recovering/Resolving]
  - Dehydration [Recovering/Resolving]
  - Seizure [Recovered/Resolved]
  - Hypoxia [Not Recovered/Not Resolved]
  - Nasopharyngeal reflux [Unknown]
  - Vomiting [Recovered/Resolved]
  - Injection site oedema [Recovered/Resolved]
  - Administration site swelling [Not Recovered/Not Resolved]
  - Seasonal allergy [Not Recovered/Not Resolved]
  - Administration site oedema [Not Recovered/Not Resolved]
  - Catheter site erythema [Not Recovered/Not Resolved]
  - Rhinorrhoea [Not Recovered/Not Resolved]
  - Productive cough [Not Recovered/Not Resolved]
  - Affect lability [Not Recovered/Not Resolved]
  - Limb discomfort [Not Recovered/Not Resolved]
  - Product selection error [Not Recovered/Not Resolved]
  - Hypersensitivity [Not Recovered/Not Resolved]
  - Diarrhoea [Recovered/Resolved]
  - Cough [Not Recovered/Not Resolved]

NARRATIVE: CASE EVENT DATE: 20221013
